FAERS Safety Report 4579812-X (Version None)
Quarter: 2005Q1

REPORT INFORMATION
  Report Type: 
  Country: None (occurrence: None)
  Receive Date: 20050210
  Receipt Date: 20050203
  Transmission Date: 20050727
  Serious: Yes (Hospitalization)
  Sender: FDA-Public Use
  Company Number: 2005PK00214

PATIENT
  Age: 23 Year
  Sex: Female

DRUGS (4)
  1. ZOMIG [Suspect]
     Dosage: 4 DF DAILY PO
     Route: 048
     Dates: start: 20050113, end: 20050113
  2. SIRDALUD [Suspect]
     Dosage: 4 DF DAILY PO
     Route: 048
     Dates: start: 20050113, end: 20050113
  3. DIFLUCAN [Suspect]
     Dosage: 1 DF DAILY PO
     Route: 048
     Dates: start: 20050113, end: 20050113
  4. BENZODIAZEPINES [Suspect]
     Dates: start: 20050113, end: 20050113

REACTIONS (6)
  - DISSOCIATIVE DISORDER [None]
  - DRUG ABUSER [None]
  - INTENTIONAL MISUSE [None]
  - SOMNOLENCE [None]
  - STUPOR [None]
  - TACHYCARDIA [None]
